FAERS Safety Report 7486572-1 (Version None)
Quarter: 2011Q2

REPORT INFORMATION
  Report Type: 
  Country: None (occurrence: None)
  Receive Date: 20110517
  Receipt Date: 20110512
  Transmission Date: 20111010
  Serious: Yes (Hospitalization, Other)
  Sender: FDA-Public Use
  Company Number: DE-ABBOTT-11P-062-0725465-00

PATIENT
  Sex: Female
  Weight: 86 kg

DRUGS (9)
  1. MTX [Concomitant]
     Indication: RHEUMATOID ARTHRITIS
     Dosage: 10MG OPW
     Route: 048
     Dates: start: 19990101, end: 20100923
  2. DICLOFENAC SODIUM [Concomitant]
     Indication: RHEUMATOID ARTHRITIS
     Dosage: 150MG
     Route: 048
     Dates: end: 20100923
  3. IDEOS CHEWABLE TABLETS [Concomitant]
     Indication: OSTEOPOROSIS PROPHYLAXIS
  4. ACETAMINOPHEN [Concomitant]
     Indication: PRODUCT USED FOR UNKNOWN INDICATION
  5. MTX [Concomitant]
     Indication: PRODUCT USED FOR UNKNOWN INDICATION
     Dosage: 15MG
     Route: 048
  6. FOLIC ACID [Concomitant]
     Indication: PRODUCT USED FOR UNKNOWN INDICATION
     Dosage: ON DAY AFTER MTX
  7. HUMIRA [Suspect]
     Indication: RHEUMATOID ARTHRITIS
     Route: 058
     Dates: start: 20050601, end: 20100923
  8. DIPYRONE TAB [Concomitant]
     Indication: PRODUCT USED FOR UNKNOWN INDICATION
     Dosage: 40 DROPS, TID
  9. PREDNISONE [Concomitant]
     Indication: PRODUCT USED FOR UNKNOWN INDICATION
     Dosage: OPD

REACTIONS (7)
  - RHEUMATOID ARTHRITIS [None]
  - ARTHRALGIA [None]
  - MOBILITY DECREASED [None]
  - JOINT SWELLING [None]
  - MUSCULOSKELETAL STIFFNESS [None]
  - COLITIS [None]
  - DIARRHOEA [None]
